FAERS Safety Report 10331793 (Version 1)
Quarter: 2014Q3

REPORT INFORMATION
  Report Type: Report from Study
  Country: US (occurrence: US)
  Receive Date: 20140722
  Receipt Date: 20140722
  Transmission Date: 20150326
  Serious: Yes (Life-Threatening, Hospitalization)
  Sender: FDA-Public Use
  Company Number: PHHY2011US120921

PATIENT
  Sex: Female

DRUGS (19)
  1. SINGULAIR [Concomitant]
     Active Substance: MONTELUKAST SODIUM
     Dosage: 10 MG, EVERY NIGHT AT BEDTIME
     Route: 048
  2. ASPIRIN. [Concomitant]
     Active Substance: ASPIRIN
     Dosage: 81 MG, QD
     Route: 048
  3. WARFARIN [Concomitant]
     Active Substance: WARFARIN
     Dosage: 7.5 MG, QD
     Route: 048
  4. CITALOPRAM [Concomitant]
     Active Substance: CITALOPRAM HYDROBROMIDE
     Dosage: 40 MG, 1 IN 1 DAY
     Route: 048
  5. METOPROLOL [Concomitant]
     Active Substance: METOPROLOL
     Dosage: UNK
  6. XOLAIR [Suspect]
     Active Substance: OMALIZUMAB
     Indication: ASTHMA
     Dosage: 225 MG,1 IN 2-2
     Route: 058
  7. ATIVAN [Concomitant]
     Active Substance: LORAZEPAM
     Dosage: 1 MG, 3 IN 1 DAY
     Route: 048
  8. EPIPEN [Concomitant]
     Active Substance: EPINEPHRINE
     Dosage: AS DIRECTED, UD
     Route: 065
  9. VANCOMYCIN [Suspect]
     Active Substance: VANCOMYCIN
     Indication: URINARY TRACT INFECTION
     Dosage: UNK UKN, ONCE IN 1 WEEK
  10. BYSTOLIC [Concomitant]
     Active Substance: NEBIVOLOL HYDROCHLORIDE
     Dosage: UNK UKN, UNK
  11. GUAIFENESIN W/HYDROCODONE [Concomitant]
     Dosage: 5 CC, Q6H
     Route: 048
  12. ALBUTEROL. [Concomitant]
     Active Substance: ALBUTEROL
     Dosage: 2 DF, Q4H (1 IN 4 HR)
     Route: 055
  13. DUONEB [Concomitant]
     Active Substance: ALBUTEROL SULFATE\IPRATROPIUM BROMIDE
     Dosage: 1 VIAL IN SMALL VOLUME NEBULIZER, Q4H
     Route: 051
  14. XOLAIR [Suspect]
     Active Substance: OMALIZUMAB
     Dosage: UNK UKN, UNK
     Route: 058
  15. COREG [Concomitant]
     Active Substance: CARVEDILOL
     Dosage: UNK UKN, UNK
  16. TESSALON [Concomitant]
     Active Substance: BENZONATATE
     Dosage: 100 MG,  3IN 1 DAY
     Route: 048
  17. PREDNISONE. [Concomitant]
     Active Substance: PREDNISONE
     Dosage: 20 MG, 2 IN 1 DAY (40MG)
  18. THEOPHYLLINE [Concomitant]
     Active Substance: THEOPHYLLINE
     Dosage: 300 CC ,  2 IN 1 DAY
     Route: 048
  19. ADVAIR HFA [Concomitant]
     Active Substance: FLUTICASONE PROPIONATE\SALMETEROL XINAFOATE
     Dosage: 1 DF, UNK
     Route: 055

REACTIONS (10)
  - Pyrexia [Unknown]
  - Asthenia [Unknown]
  - Arthralgia [Unknown]
  - Asthma [Unknown]
  - Cystitis [Unknown]
  - Blood immunoglobulin E increased [Unknown]
  - Sepsis [Unknown]
  - Weight decreased [Unknown]
  - Dyspnoea [Unknown]
  - Sputum abnormal [Unknown]
